FAERS Safety Report 19411776 (Version 1)
Quarter: 2021Q2

REPORT INFORMATION
  Report Type: Spontaneous
  Country: US (occurrence: US)
  Receive Date: 20210614
  Receipt Date: 20210614
  Transmission Date: 20210717
  Serious: Yes (Congenital Anomaly)
  Sender: FDA-Public Use
  Company Number: None

PATIENT
  Age: 38 Year
  Sex: Female
  Weight: 47.7 kg

DRUGS (1)
  1. KEYTRUDA [Suspect]
     Active Substance: PEMBROLIZUMAB
     Indication: MALIGNANT MELANOMA
     Dosage: ?          QUANTITY:1 INJECTION(S);OTHER FREQUENCY:EVERY 3 WEEKS.;?
     Route: 042

REACTIONS (9)
  - Chest discomfort [None]
  - Nausea [None]
  - Chest pain [None]
  - Weight increased [None]
  - Fatigue [None]
  - Pregnancy [None]
  - Abdominal pain [None]
  - Abortion spontaneous [None]
  - Pruritus [None]

NARRATIVE: CASE EVENT DATE: 20210401
